FAERS Safety Report 9124000 (Version 2)
Quarter: 2013Q1

REPORT INFORMATION
  Report Type: Spontaneous
  Country: JP (occurrence: JP)
  Receive Date: 20130227
  Receipt Date: 20130312
  Transmission Date: 20140127
  Serious: No
  Sender: FDA-Public Use
  Company Number: JP-OTSUKA-JP-2013-10483

PATIENT
  Age: 72 Year
  Sex: Female

DRUGS (4)
  1. CILOSTAZOL [Suspect]
     Dosage: UNK
     Route: 048
  2. WARFARIN POTASSIUM [Suspect]
     Dosage: UNK
     Route: 048
  3. PITAVASTATIN CALCIUM [Concomitant]
     Dosage: UNK
     Route: 048
  4. CARVEDILOL [Concomitant]
     Dosage: UNK
     Route: 048

REACTIONS (1)
  - No adverse event [Unknown]
